FAERS Safety Report 9637614 (Version 3)
Quarter: 2013Q4

REPORT INFORMATION
  Report Type: Spontaneous
  Country: US (occurrence: None)
  Receive Date: 20131018
  Receipt Date: 20131122
  Transmission Date: 20140711
  Serious: Yes (Death, Other)
  Sender: FDA-Public Use
  Company Number: ADR-2013-01861

PATIENT
  Age: 43 Year
  Sex: Female

DRUGS (2)
  1. BACLOFEN [Suspect]
     Indication: PAIN
  2. HYDROMORPHONE [Suspect]
     Indication: PAIN
     Route: 048

REACTIONS (1)
  - Death [None]
